FAERS Safety Report 9049419 (Version 1)
Quarter: 2013Q1

REPORT INFORMATION
  Report Type: Report from Study
  Country: US (occurrence: US)
  Receive Date: 20130205
  Receipt Date: 20130205
  Transmission Date: 20140127
  Serious: Yes (Hospitalization, Other)
  Sender: FDA-Public Use
  Company Number: US-JNJFOC-20130116796

PATIENT
  Age: 20 Year
  Sex: Female

DRUGS (5)
  1. REMICADE [Suspect]
     Indication: CROHN^S DISEASE
     Route: 042
  2. HYOSCYAMINE [Concomitant]
  3. VITAMIN D3 [Concomitant]
  4. PENTASA [Concomitant]
  5. VALTREX [Concomitant]
     Indication: INFECTION

REACTIONS (4)
  - Crohn^s disease [Not Recovered/Not Resolved]
  - Immunodeficiency [Unknown]
  - Eczema herpeticum [Not Recovered/Not Resolved]
  - Psoriasis [Unknown]
